FAERS Safety Report 7983166-6 (Version None)
Quarter: 2011Q4

REPORT INFORMATION
  Report Type: 
  Country: None (occurrence: None)
  Receive Date: 20111215
  Receipt Date: 20111202
  Transmission Date: 20120403
  Serious: Yes (Hospitalization)
  Sender: FDA-Public Use
  Company Number: FR-MYLANLABS-2011S1025236

PATIENT
  Age: 57 Year
  Sex: Female

DRUGS (4)
  1. LEUCOVORIN CALCIUM [Suspect]
     Indication: COLON CANCER
     Route: 041
  2. FLUOROURACIL [Suspect]
     Indication: COLON CANCER
     Route: 041
  3. IRINOTECAN HCL [Suspect]
     Indication: COLON CANCER
     Route: 041
  4. BEVACIZUMAB [Suspect]
     Indication: COLON CANCER
     Route: 041

REACTIONS (3)
  - NECROSIS [None]
  - EXTRAVASATION [None]
  - TRACHEAL DISORDER [None]
